FAERS Safety Report 4890355-6 (Version None)
Quarter: 2005Q4

REPORT INFORMATION
  Report Type: 
  Country: None (occurrence: None)
  Receive Date: 20051216
  Receipt Date: 20051005
  Transmission Date: 20060501
  Serious: No
  Sender: FDA-Public Use
  Company Number: USA0510110086

PATIENT
  Age: 83 Year
  Sex: Male

DRUGS (2)
  1. CIALIS [Suspect]
     Indication: ERECTILE DYSFUNCTION
     Dosage: 20 MG
     Dates: start: 20051004, end: 20051005
  2. LEVOXYL [Concomitant]

REACTIONS (2)
  - BLOOD URINE PRESENT [None]
  - DRUG INEFFECTIVE [None]
